FAERS Safety Report 22122905 (Version 2)
Quarter: 2023Q2

REPORT INFORMATION
  Report Type: Report from Study
  Country: BR (occurrence: BR)
  Receive Date: 20230322
  Receipt Date: 20230628
  Transmission Date: 20230722
  Serious: Yes (Hospitalization)
  Sender: FDA-Public Use
  Company Number: BR-CELLTRION INC.-2023BR005907

PATIENT

DRUGS (1)
  1. INFLIXIMAB [Suspect]
     Active Substance: INFLIXIMAB
     Indication: Product used for unknown indication
     Dosage: UNK
     Route: 042
     Dates: start: 20230116

REACTIONS (4)
  - Gastrointestinal disorder [Recovered/Resolved]
  - Back pain [Recovered/Resolved]
  - Labyrinthitis [Unknown]
  - Intentional dose omission [Unknown]
